FAERS Safety Report 18738679 (Version 2)
Quarter: 2021Q2

REPORT INFORMATION
  Report Type: Report from Study
  Country: US (occurrence: US)
  Receive Date: 20210114
  Receipt Date: 20210615
  Transmission Date: 20210717
  Serious: Yes (Other)
  Sender: FDA-Public Use
  Company Number: US-ROCHE-2722902

PATIENT
  Age: 65 Year
  Sex: Female
  Weight: 59.9 kg

DRUGS (12)
  1. OBINUTUZUMAB. [Suspect]
     Active Substance: OBINUTUZUMAB
     Dosage: ON DAY 8, CYCLE 1; ON DAY 15, CYCLE 1; ON DAY 1, CYCLE 2?6
     Route: 042
  2. VENETOCLAX. [Suspect]
     Active Substance: VENETOCLAX
     Dosage: CYCLE 3 (DAYS 8?14)
     Route: 048
  3. NEULASTA [Concomitant]
     Active Substance: PEGFILGRASTIM
  4. OBINUTUZUMAB. [Suspect]
     Active Substance: OBINUTUZUMAB
     Indication: CHRONIC LYMPHOCYTIC LEUKAEMIA
     Dosage: ON DAY 1, CYCLE 1
     Route: 042
     Dates: start: 20200519
  5. IBRUTINIB [Suspect]
     Active Substance: IBRUTINIB
     Indication: CHRONIC LYMPHOCYTIC LEUKAEMIA
     Dosage: ON DAYS 1?28, CYCLES 1?19
     Route: 048
     Dates: start: 20200519
  6. OBINUTUZUMAB. [Suspect]
     Active Substance: OBINUTUZUMAB
     Dosage: TOTAL DOSE ADMINISTERED THIS COURSE (DOSE): 3000 MG LAST ADMINISTERED DATE: 19/MAY/2020 VALUES PRESE
     Route: 042
  7. VENETOCLAX. [Suspect]
     Active Substance: VENETOCLAX
     Indication: CHRONIC LYMPHOCYTIC LEUKAEMIA
     Dosage: CYCLE 3 (DAYS 1?7)
     Route: 048
  8. VENETOCLAX. [Suspect]
     Active Substance: VENETOCLAX
     Dosage: CYCLE 4 TO 14  (DAYS 1?28)?TOTAL DOSE ADMINISTERED THIS COURSE (DOSE): 4000 MG, LAST ADMINISTERED DA
     Route: 048
  9. OBINUTUZUMAB. [Suspect]
     Active Substance: OBINUTUZUMAB
     Dosage: ON DAY 2, CYCLE 1
     Route: 042
  10. VENETOCLAX. [Suspect]
     Active Substance: VENETOCLAX
     Dosage: CYCLE 3 (DAYS 22?28)
     Route: 048
  11. IBRUTINIB [Suspect]
     Active Substance: IBRUTINIB
     Dosage: TOTAL DOSE ADMINISTERED THIS COURSE (DOSE): 11760 MG LAST ADMINISTERED DATE: 19/MAY/2020 VALUES PRES
     Route: 048
  12. VENETOCLAX. [Suspect]
     Active Substance: VENETOCLAX
     Dosage: CYCLE 3 (DAYS 15?21)
     Route: 048

REACTIONS (4)
  - Leukocytosis [Recovered/Resolved]
  - Neutrophil count decreased [Recovered/Resolved]
  - Lymphocyte count decreased [Recovered/Resolved]
  - Lymphocyte count increased [Recovered/Resolved]

NARRATIVE: CASE EVENT DATE: 20200519
